FAERS Safety Report 9782129 (Version 1)
Quarter: 2013Q4

REPORT INFORMATION
  Report Type: Spontaneous
  Country: FR (occurrence: FR)
  Receive Date: 20131226
  Receipt Date: 20131226
  Transmission Date: 20140711
  Serious: Yes (Other)
  Sender: FDA-Public Use
  Company Number: FR-BRISTOL-MYERS SQUIBB COMPANY-19921543

PATIENT
  Age: 32 Year
  Sex: Male

DRUGS (6)
  1. ABILIFY TABS 30 MG [Suspect]
     Route: 048
     Dates: start: 201110, end: 201311
  2. SERESTA [Concomitant]
  3. SERTRALINE [Concomitant]
  4. LOXAPAC [Concomitant]
  5. IMOVANE [Concomitant]
     Dosage: 1 TABLET DAILY
  6. LEPTICUR [Concomitant]
     Dosage: 1 TABS

REACTIONS (1)
  - Pathological gambling [Recovered/Resolved]
